FAERS Safety Report 7568698-7 (Version None)
Quarter: 2011Q2

REPORT INFORMATION
  Report Type: 
  Country: None (occurrence: None)
  Receive Date: 20110617
  Receipt Date: 20110602
  Transmission Date: 20111010
  Serious: Yes (Hospitalization, Other)
  Sender: FDA-Public Use
  Company Number: AUR-APL-2011-01552

PATIENT
  Age: 51 Year
  Sex: Female

DRUGS (3)
  1. SUMATRIPTAN SUCCINATE [Suspect]
     Indication: MIGRAINE
  2. PIZOTIFEN (PIZOTIFEN) [Suspect]
     Indication: MIGRAINE
  3. CO-CODAMOL (PANADEINE CO) [Suspect]
     Indication: MUSCULOSKELETAL PAIN

REACTIONS (3)
  - CEREBRAL VASOCONSTRICTION [None]
  - BALINT'S SYNDROME [None]
  - HEADACHE [None]
